FAERS Safety Report 7437136-7 (Version None)
Quarter: 2011Q2

REPORT INFORMATION
  Report Type: 
  Country: None (occurrence: None)
  Receive Date: 20110426
  Receipt Date: 20110422
  Transmission Date: 20111010
  Serious: Yes (Other)
  Sender: FDA-Public Use
  Company Number: US-PERRIGO-11US003307

PATIENT
  Sex: Male
  Weight: 49.887 kg

DRUGS (3)
  1. SINGULAIR [Concomitant]
     Indication: ASTHMA
     Dosage: 10 MG, QD
     Route: 048
  2. QVAR 40 [Concomitant]
     Indication: ASTHMA
     Dosage: UNKNOWN, DAILY
     Route: 055
  3. IBUPROFEN [Suspect]
     Indication: PAIN
     Dosage: 400 MG, SINGLE
     Route: 048
     Dates: start: 20110419, end: 20110419

REACTIONS (4)
  - HYPERSENSITIVITY [None]
  - EYE SWELLING [None]
  - INCORRECT DOSE ADMINISTERED [None]
  - THROAT TIGHTNESS [None]
